FAERS Safety Report 4673494-4 (Version None)
Quarter: 2005Q2

REPORT INFORMATION
  Report Type: 
  Country: None (occurrence: None)
  Receive Date: 20050525
  Receipt Date: 20050516
  Transmission Date: 20051028
  Serious: Yes (Death)
  Sender: FDA-Public Use
  Company Number: US-SANOFI-SYNTHELABO-A03200501462

PATIENT
  Age: 77 Year
  Sex: Male
  Weight: 90.3 kg

DRUGS (8)
  1. PLAVIX [Suspect]
     Indication: STENT PLACEMENT
     Route: 048
     Dates: start: 20041103
  2. ASPIRIN [Suspect]
     Route: 048
     Dates: start: 20041103
  3. HEPARIN [Suspect]
     Route: 042
     Dates: start: 20041103
  4. INTEGRILIN [Suspect]
     Dosage: TWO 7.9 BOLUS DOSES AT 09:48 AND 09:59, FOLLOWED BY A 14 ML/HOUR CONTINUOUS INFUSION AT 09:51
     Route: 042
     Dates: start: 20041103
  5. LOPRESSOR [Concomitant]
     Dosage: UNK
     Route: 048
  6. NITROGLYCERIN [Concomitant]
     Dosage: UNK
     Route: 065
  7. AVAPRO [Concomitant]
     Dosage: UNK
     Route: 048
  8. GALANTAMINE HYDROBROMIDE [Concomitant]
     Dosage: UNK
     Route: 065

REACTIONS (5)
  - CARDIAC FLUTTER [None]
  - CARDIO-RESPIRATORY ARREST [None]
  - CEREBRAL HAEMORRHAGE [None]
  - DEPRESSED LEVEL OF CONSCIOUSNESS [None]
  - HYDROCEPHALUS [None]
